FAERS Safety Report 9174470 (Version 1)
Quarter: 2013Q1

REPORT INFORMATION
  Report Type: Spontaneous
  Country: AM (occurrence: None)
  Receive Date: 20130313
  Receipt Date: 20130313
  Transmission Date: 20140127
  Serious: Yes (Other)
  Sender: FDA-Public Use
  Company Number: AM-1197071

PATIENT
  Age: 18 Year
  Sex: Male

DRUGS (1)
  1. TOBRADEX [Suspect]
     Route: 047

REACTIONS (3)
  - Intraocular pressure increased [None]
  - Eye pain [None]
  - Ocular hyperaemia [None]
